FAERS Safety Report 6814440-4 (Version None)
Quarter: 2010Q2

REPORT INFORMATION
  Report Type: 
  Country: None (occurrence: None)
  Receive Date: 20100629
  Receipt Date: 20100620
  Transmission Date: 20101027
  Serious: Yes (Other)
  Sender: FDA-Public Use
  Company Number: SDA_43353_2010

PATIENT
  Sex: Male

DRUGS (4)
  1. WELLBUTRIN XL [Suspect]
     Indication: DEPRESSION
     Dosage: 300 MG QD ORAL
     Route: 048
     Dates: start: 19990101
  2. LISINOPRIL [Concomitant]
  3. SIMVASTATIN [Concomitant]
  4. NORVASC [Concomitant]

REACTIONS (9)
  - ANGINA PECTORIS [None]
  - CARDIAC DISORDER [None]
  - CHEST DISCOMFORT [None]
  - CHEST PAIN [None]
  - DIZZINESS [None]
  - DIZZINESS EXERTIONAL [None]
  - DYSPNOEA [None]
  - DYSPNOEA EXERTIONAL [None]
  - MYOCARDIAL INFARCTION [None]
